FAERS Safety Report 10268486 (Version 1)
Quarter: 2014Q2

REPORT INFORMATION
  Report Type: Spontaneous
  Country: GB (occurrence: GB)
  Receive Date: 20140630
  Receipt Date: 20140630
  Transmission Date: 20141212
  Serious: Yes (Other)
  Sender: FDA-Public Use
  Company Number: GB-NOVOPROD-414057

PATIENT
  Age: 48 Year
  Sex: Female
  Weight: 125.4 kg

DRUGS (7)
  1. VICTOZA [Suspect]
     Indication: DIABETES MELLITUS
     Dosage: 1.2  MG UNK,
     Route: 058
     Dates: start: 20101022, end: 20121224
  2. AMLODIPINE [Concomitant]
     Dosage: UNK
     Route: 065
  3. GLIMEPIRIDE [Concomitant]
     Dosage: UNK
     Route: 065
  4. HUMULIN [Concomitant]
     Dosage: UNK
     Route: 065
  5. METFORMIN HYDROCHLORIDE [Concomitant]
     Dosage: UNK
     Route: 065
  6. RAMIPRIL [Concomitant]
     Dosage: UNK
     Route: 065
  7. SIMVASTATIN [Concomitant]
     Dosage: UNK
     Route: 065

REACTIONS (3)
  - Thyroid neoplasm [Not Recovered/Not Resolved]
  - Huerthle cell carcinoma [Unknown]
  - Macrophage activation [Unknown]
